FAERS Safety Report 24579836 (Version 4)
Quarter: 2024Q4

REPORT INFORMATION
  Report Type: Report from Study
  Country: MX (occurrence: MX)
  Receive Date: 20241105
  Receipt Date: 20241226
  Transmission Date: 20250114
  Serious: Yes (Hospitalization, Other)
  Sender: NOVARTIS
  Company Number: MX-002147023-NVSC2024MX137375

PATIENT
  Age: 63 Year
  Sex: Female
  Weight: 41 kg

DRUGS (6)
  1. KISQALI [Suspect]
     Active Substance: RIBOCICLIB
     Indication: Breast cancer
     Dosage: 600 MG, Q24H (3 OF 200 MG) (200 MG EVERY 24 HOURS FOR 21 DAYS)
     Route: 048
     Dates: start: 202401
  2. KISQALI [Suspect]
     Active Substance: RIBOCICLIB
     Dosage: 3 DOSAGE FORM (200 MG), QD
     Route: 048
  3. KISQALI [Suspect]
     Active Substance: RIBOCICLIB
     Dosage: 3 DOSAGE FORM (200 MG), QD
     Route: 048
  4. KISQALI [Suspect]
     Active Substance: RIBOCICLIB
     Dosage: 3 DOSAGE FORM, QD
     Route: 048
     Dates: end: 20240820
  5. KISQALI [Suspect]
     Active Substance: RIBOCICLIB
     Dosage: 200 MG, QD
     Route: 048
     Dates: end: 202409
  6. LETROZOLE [Concomitant]
     Active Substance: LETROZOLE
     Indication: Breast cancer
     Dosage: 1 DOSAGE FORM, QD (ACCORD LAB)
     Route: 048
     Dates: start: 202301

REACTIONS (29)
  - Decreased immune responsiveness [Unknown]
  - Blood test abnormal [Unknown]
  - Haemoglobin decreased [Recovered/Resolved]
  - Weight decreased [Unknown]
  - Genital abscess [Not Recovered/Not Resolved]
  - Diarrhoea [Unknown]
  - Food allergy [Unknown]
  - Erythema [Recovering/Resolving]
  - Pain [Recovering/Resolving]
  - Pruritus [Recovering/Resolving]
  - Irritability [Recovering/Resolving]
  - Acne [Recovering/Resolving]
  - Sensitive skin [Recovering/Resolving]
  - Dyspepsia [Recovering/Resolving]
  - Headache [Recovered/Resolved]
  - Arthralgia [Recovered/Resolved]
  - Abdominal pain [Recovered/Resolved]
  - Asthenia [Recovered/Resolved]
  - Weight increased [Unknown]
  - Product availability issue [Unknown]
  - Blood triglycerides increased [Unknown]
  - Constipation [Recovered/Resolved]
  - Gastritis [Recovered/Resolved]
  - Constipation [Recovered/Resolved]
  - Skin disorder [Not Recovered/Not Resolved]
  - Glossodynia [Not Recovered/Not Resolved]
  - Haemoglobin increased [Recovering/Resolving]
  - Fatigue [Recovering/Resolving]
  - Decreased appetite [Recovering/Resolving]

NARRATIVE: CASE EVENT DATE: 20240101
